FAERS Safety Report 19914006 (Version 1)
Quarter: 2021Q4

REPORT INFORMATION
  Report Type: Spontaneous
  Country: KR (occurrence: KR)
  Receive Date: 20211004
  Receipt Date: 20211004
  Transmission Date: 20220303
  Serious: Yes (Other)
  Sender: FDA-Public Use
  Company Number: KR-GLAXOSMITHKLINE-KR2021APC206321

PATIENT
  Age: 41 Year
  Sex: Male
  Weight: 53.5 kg

DRUGS (71)
  1. KIVEXA [Suspect]
     Active Substance: ABACAVIR SULFATE\LAMIVUDINE
     Indication: HIV infection
     Dosage: UNK
     Route: 048
     Dates: start: 20160621
  2. POTASSIUM PHOSPHATE [Suspect]
     Active Substance: POTASSIUM PHOSPHATE
     Indication: Phosphorus metabolism disorder
     Dosage: UNK, INJECTION SOLUTION
     Route: 042
     Dates: start: 20160621, end: 20160621
  3. POTASSIUM PHOSPHATE [Suspect]
     Active Substance: POTASSIUM PHOSPHATE
     Indication: Electrolyte imbalance
     Dosage: UNK, INJECTION SOLUTION
     Route: 042
     Dates: start: 20170227, end: 20170228
  4. POTASSIUM PHOSPHATE [Suspect]
     Active Substance: POTASSIUM PHOSPHATE
     Dosage: UNK, INJECTION SOLUTION
     Route: 042
     Dates: start: 20170303, end: 20170304
  5. POTASSIUM PHOSPHATE [Suspect]
     Active Substance: POTASSIUM PHOSPHATE
     Dosage: UNK, INJECTION SOLUTION
     Route: 042
     Dates: start: 20170307, end: 20170307
  6. CALCIUM GLUCONATE [Suspect]
     Active Substance: CALCIUM GLUCONATE
     Indication: Calcium deficiency
     Dosage: UNK, INJECTION SOLUTION
     Route: 042
     Dates: start: 20160621, end: 20160621
  7. SODIUM BICARBONATE [Concomitant]
     Active Substance: SODIUM BICARBONATE
     Indication: Renal tubular dysfunction
     Dosage: UNK,SUGER COATED TABLET
     Route: 048
     Dates: start: 20160618, end: 20160709
  8. ACECLOFENAC [Concomitant]
     Active Substance: ACECLOFENAC
     Indication: Pain in extremity
     Dosage: UNK,FILM COATED TABLET
     Route: 048
     Dates: start: 20170329, end: 20170418
  9. ACETYLCYSTEINE [Concomitant]
     Active Substance: ACETYLCYSTEINE
     Indication: Prophylaxis
     Dosage: UNK, INJECTION SOLUTION
     Route: 042
     Dates: start: 20170226, end: 20170226
  10. ACETYLCYSTEINE [Concomitant]
     Active Substance: ACETYLCYSTEINE
     Dosage: UNK, INJECTION SOLUTION
     Route: 042
     Dates: start: 20170305, end: 20170305
  11. AMOXICILLIN [Concomitant]
     Active Substance: AMOXICILLIN
     Indication: Gastroenteritis
     Dosage: UNK, FILM COATED TABLET
     Route: 048
     Dates: start: 20160625, end: 20160709
  12. AMOXICILLIN [Concomitant]
     Active Substance: AMOXICILLIN
     Indication: Colitis
  13. BRIMONIDINE [Concomitant]
     Active Substance: BRIMONIDINE TARTRATE
     Indication: Glaucoma
     Dosage: UNK,OPTHAMLMIC SOLUTION
     Route: 050
     Dates: start: 20140321
  14. CAMOSTAT [Concomitant]
     Active Substance: CAMOSTAT
     Indication: Pancreatitis chronic
     Dosage: UNK,FILM COATED TABLET
     Route: 048
     Dates: start: 20170303, end: 20170322
  15. CEFTRIAXONE [Concomitant]
     Active Substance: CEFTRIAXONE
     Indication: Gastroenteritis
     Dosage: UNK, INJECTION POWDER FOR SOLUTION
     Route: 042
     Dates: start: 20160617, end: 20160624
  16. CEFTRIAXONE [Concomitant]
     Active Substance: CEFTRIAXONE
     Indication: Colitis
     Dosage: UNK,INJECTION POWDER FOR SOLUTION
     Route: 042
     Dates: start: 20170225, end: 20170226
  17. CEFTRIAXONE [Concomitant]
     Active Substance: CEFTRIAXONE
     Indication: Pancreatitis chronic
  18. CHLORPHENIRAMINE MALEATE [Concomitant]
     Active Substance: CHLORPHENIRAMINE MALEATE
     Indication: Pruritus
     Dosage: UNK, INJECTION SOLUTION
     Route: 042
     Dates: start: 20170404, end: 20170404
  19. CLOPERASTINE [Concomitant]
     Active Substance: CLOPERASTINE
     Indication: Cough
     Dosage: UNK, SUSPENSION
     Route: 048
     Dates: start: 20161011, end: 20161020
  20. MONTMORILLONITE [Concomitant]
     Active Substance: MONTMORILLONITE
     Indication: Diarrhoea
     Dosage: UNK, SUSPENSION
     Route: 048
     Dates: start: 20170301, end: 20170322
  21. MONTMORILLONITE [Concomitant]
     Active Substance: MONTMORILLONITE
     Dosage: UNK, SUSPENSION
     Route: 048
     Dates: start: 20170401, end: 20170404
  22. EPERISONE [Concomitant]
     Active Substance: EPERISONE
     Indication: Pain in extremity
     Dosage: UNK, SUGER COATED TABLET
     Route: 048
     Dates: start: 20170329, end: 20170329
  23. FAMOTIDINE [Concomitant]
     Active Substance: FAMOTIDINE
     Indication: Prophylaxis
     Dosage: UNK, INJECTION POWDER ,LYOPHILIZED FOR SOLUTION
     Route: 042
     Dates: start: 20170223, end: 20170223
  24. FENOFIBRATE [Concomitant]
     Active Substance: FENOFIBRATE
     Indication: Hyperlipidaemia
     Dosage: UNK, EXTENDED RELEASE FILM COATED TABLET
     Route: 048
     Dates: start: 20140814
  25. FEXOFENADINE [Concomitant]
     Active Substance: FEXOFENADINE HYDROCHLORIDE
     Indication: Nasopharyngitis
     Dosage: UNK, FILM COATED TAB
     Route: 048
     Dates: start: 20161214, end: 20161220
  26. FEXOFENADINE [Concomitant]
     Active Substance: FEXOFENADINE HYDROCHLORIDE
     Indication: Cough
     Dosage: UNK, FILM COATED TAB
     Route: 048
     Dates: start: 20161011, end: 20161020
  27. FLUCONAZOLE [Concomitant]
     Active Substance: FLUCONAZOLE
     Indication: Candida infection
     Dosage: UNK, INJECTION SOLUTION
     Route: 042
     Dates: start: 20160617, end: 20160624
  28. FLUCONAZOLE [Concomitant]
     Active Substance: FLUCONAZOLE
     Indication: Prophylaxis
     Dosage: UNK, INJECTION SOLUTION
     Route: 042
     Dates: start: 20170306, end: 20170307
  29. FLUCONAZOLE [Concomitant]
     Active Substance: FLUCONAZOLE
     Dosage: UNK, INJECTION SOLUTION
     Route: 042
     Dates: start: 20160625, end: 20160701
  30. FOLIC ACID [Concomitant]
     Active Substance: FOLIC ACID
     Indication: Anaemia folate deficiency
     Dosage: UNK, PLAIN TAB
     Route: 048
     Dates: start: 20160624, end: 20160709
  31. FOLIC ACID [Concomitant]
     Active Substance: FOLIC ACID
     Dosage: UNK, PLAIN TABLET
     Route: 048
     Dates: start: 20170225, end: 20170226
  32. GABAPENTIN [Concomitant]
     Active Substance: GABAPENTIN
     Indication: Pain
     Dosage: UNK
     Route: 048
     Dates: start: 20160623, end: 20160807
  33. GABAPENTIN [Concomitant]
     Active Substance: GABAPENTIN
     Indication: Necrotising colitis
     Dosage: UNK
     Route: 048
     Dates: start: 20170225, end: 20170226
  34. LATANOPROST [Concomitant]
     Active Substance: LATANOPROST
     Indication: Glaucoma
     Dosage: UNK
     Dates: start: 20130516
  35. MAGNESIUM SULFATE [Concomitant]
     Active Substance: MAGNESIUM SULFATE
     Indication: Prophylaxis
     Dosage: UNK
     Dates: start: 20170328, end: 20170328
  36. MEGESTROL [Concomitant]
     Active Substance: MEGESTROL
     Indication: Malnutrition
     Dosage: UNK, SUSPENSION
     Route: 048
     Dates: start: 20160530, end: 20160709
  37. MEGESTROL [Concomitant]
     Active Substance: MEGESTROL
     Dosage: UNK, SUSPENSION
     Route: 048
     Dates: start: 20170225, end: 20170226
  38. MELOXICAM [Concomitant]
     Active Substance: MELOXICAM
     Indication: Arthritis
     Dosage: UNK, CAPSULE HARD POWDER
     Route: 048
     Dates: start: 20170215, end: 20170222
  39. MEROPENEM [Concomitant]
     Active Substance: MEROPENEM
     Indication: Pancreatitis chronic
  40. METFORMIN [Concomitant]
     Active Substance: METFORMIN HYDROCHLORIDE
     Indication: Diabetes mellitus
     Dosage: UNK, EXTENDED RELEASE TABLET
     Route: 048
     Dates: start: 20160629, end: 20160708
  41. METFORMIN\SITAGLIPTIN [Concomitant]
     Active Substance: METFORMIN\SITAGLIPTIN
     Indication: Diabetes mellitus
     Dosage: UNK,, EXTENDED RELEASE TABLET
     Route: 048
     Dates: start: 20160901
  42. METOCLOPRAMIDE [Concomitant]
     Active Substance: METOCLOPRAMIDE
     Indication: Pancreatitis chronic
     Dosage: UNK, INJECTION SOLUTION
     Route: 030
     Dates: start: 20170223, end: 20170223
  43. METRONIDAZOLE [Concomitant]
     Active Substance: METRONIDAZOLE
     Indication: Gastroenteritis
     Dosage: UNK
     Route: 048
     Dates: start: 20160622, end: 20160701
  44. METRONIDAZOLE [Concomitant]
     Active Substance: METRONIDAZOLE
     Indication: Colitis
     Dosage: UNK, INJECTION SOLUTION
     Route: 042
     Dates: start: 20170403, end: 20170404
  45. METRONIDAZOLE [Concomitant]
     Active Substance: METRONIDAZOLE
     Indication: Pancreatitis chronic
     Dosage: UNK,INJECTION SOLUTION
     Route: 042
     Dates: start: 20170226, end: 20170226
  46. ORPHENADRINE CITRATE [Concomitant]
     Active Substance: ORPHENADRINE CITRATE
     Indication: Arthritis
     Dosage: UNK,EXTENDED RELEASE FILM COATED TABLET
     Route: 048
     Dates: start: 20170215, end: 20170222
  47. ACETAMINOPHEN [Concomitant]
     Active Substance: ACETAMINOPHEN
     Indication: Pancreatitis chronic
     Dosage: UNK,EXTENDED RELEASE FILM COATED TABLET
     Route: 048
     Dates: start: 20170227, end: 20170313
  48. MEPERIDINE [Concomitant]
     Active Substance: MEPERIDINE
     Indication: Anal abscess
     Dosage: UNK, INJECTION SOLUTION
     Route: 030
     Dates: start: 20160622, end: 20160622
  49. MEPERIDINE [Concomitant]
     Active Substance: MEPERIDINE
     Dosage: UNK, INJECTION SOLUTION
     Route: 030
     Dates: start: 20170223, end: 20170225
  50. PIPERACILLIN. [Concomitant]
     Active Substance: PIPERACILLIN SODIUM
     Indication: Gastroenteritis
     Dosage: UNK, INJECTION POWDER, LYOPHILIZED FOR SOLUTION
     Route: 042
     Dates: start: 20170403, end: 20170411
  51. PIPERACILLIN. [Concomitant]
     Active Substance: PIPERACILLIN SODIUM
     Indication: Colitis
     Dosage: UNK, INJECTION POWDER, LYOPHILIZED FOR SOLUTION
     Route: 042
     Dates: start: 20170226, end: 20170303
  52. PIPERACILLIN. [Concomitant]
     Active Substance: PIPERACILLIN SODIUM
     Indication: Pancreatitis chronic
     Dosage: UNK, INJECTION POWDER FOR SOLUTION
     Dates: start: 20170312, end: 20170322
  53. POTASSIUM CHLORIDE [Concomitant]
     Active Substance: POTASSIUM CHLORIDE
     Indication: Hypokalaemia
     Dosage: UNK, INJECTION SOLUTION
     Route: 048
     Dates: start: 20170303, end: 20170303
  54. QUETIAPINE [Concomitant]
     Active Substance: QUETIAPINE
     Indication: Delirium
     Dosage: UNK
     Route: 048
     Dates: start: 20160620, end: 20160707
  55. QUETIAPINE [Concomitant]
     Active Substance: QUETIAPINE
     Dosage: UNK
     Route: 048
     Dates: start: 20170225, end: 20170321
  56. RALTEGRAVIR [Concomitant]
     Active Substance: RALTEGRAVIR
     Indication: HIV infection
     Dosage: UNK, FILM COATED TABLET
     Route: 048
     Dates: start: 20130823
  57. SITAGLIPTIN [Concomitant]
     Active Substance: SITAGLIPTIN
     Indication: Diabetes mellitus
     Dosage: UNK
     Route: 048
     Dates: start: 20160629, end: 20160708
  58. THIAMINE [Concomitant]
     Active Substance: THIAMINE
     Indication: Vitamin B complex deficiency
     Dosage: UNK, INJECTION SOLUTION
     Route: 042
     Dates: start: 20170226, end: 20170313
  59. THIAMINE [Concomitant]
     Active Substance: THIAMINE
     Indication: Prophylaxis
     Dosage: UNK, INJECTION SOLUTION
     Route: 042
     Dates: start: 20170328, end: 20170328
  60. THIAMINE [Concomitant]
     Active Substance: THIAMINE
     Dosage: UNK, PLAIN TABLET
     Route: 048
     Dates: start: 20160623, end: 20160709
  61. THIAMINE [Concomitant]
     Active Substance: THIAMINE
     Dosage: UNK, PLAIN TABLET
     Route: 048
     Dates: start: 20170225, end: 20170226
  62. THIAMINE [Concomitant]
     Active Substance: THIAMINE
     Dosage: UNK, PLAIN TABLET
     Route: 048
     Dates: start: 20170313, end: 20170322
  63. THIAMINE [Concomitant]
     Active Substance: THIAMINE
     Dosage: UNK, PLAIN TABLET
     Route: 048
     Dates: start: 20170329, end: 20170814
  64. TIMOLOL [Concomitant]
     Active Substance: TIMOLOL
     Indication: Glaucoma
     Dosage: UNK, OPHTHALMIC SOLUTION
     Route: 050
     Dates: start: 20140321
  65. TRAMADOL [Concomitant]
     Active Substance: TRAMADOL
     Indication: Gastroenteritis
     Dosage: UNK, INJECTION SOLUTION
     Route: 042
     Dates: start: 20170402, end: 20170403
  66. TRAMADOL [Concomitant]
     Active Substance: TRAMADOL
     Indication: Colitis
     Dosage: UNK, INJECTION SOLUTION
     Route: 042
     Dates: start: 20170225, end: 20170225
  67. TRAMADOL [Concomitant]
     Active Substance: TRAMADOL
     Indication: Pancreatitis chronic
     Dosage: UNK, INJECTION SOLUTION
     Route: 042
     Dates: start: 20170227, end: 20170227
  68. TRAMADOL [Concomitant]
     Active Substance: TRAMADOL
     Dosage: UNK, INJECTION SOLUTION
     Route: 042
     Dates: start: 20170306, end: 20170307
  69. ACETAMINOPHEN\TRAMADOL [Concomitant]
     Active Substance: ACETAMINOPHEN\TRAMADOL
     Indication: Pain in extremity
     Dosage: UNK, EXTENDED RELEASE FILM COATED TABLET
     Route: 048
     Dates: start: 20170329, end: 20170329
  70. ACETAMINOPHEN\TRAMADOL [Concomitant]
     Active Substance: ACETAMINOPHEN\TRAMADOL
     Indication: Arthritis
     Dosage: UNK, EXTENDED RELEASE FILM COATED TABLET
     Route: 048
     Dates: start: 20170215, end: 20170222
  71. VANCOMYCIN [Concomitant]
     Active Substance: VANCOMYCIN
     Indication: Pancreatitis chronic
     Dosage: UNK, INJECTION UNASSIGNED
     Route: 042
     Dates: start: 20170306, end: 20170309

REACTIONS (6)
  - Hypokalaemia [Recovered/Resolved]
  - Pruritus [Recovered/Resolved]
  - Arthritis [Recovered/Resolved]
  - Diarrhoea [Recovered/Resolved]
  - Cough [Recovered/Resolved]
  - Pharyngitis [Recovered/Resolved]

NARRATIVE: CASE EVENT DATE: 20161011
